FAERS Safety Report 10570186 (Version 1)
Quarter: 2014Q4

REPORT INFORMATION
  Report Type: Spontaneous
  Country: DE (occurrence: DE)
  Receive Date: 20141107
  Receipt Date: 20141107
  Transmission Date: 20150529
  Serious: Yes (Other)
  Sender: FDA-Public Use
  Company Number: DE-AUROBINDO-AUR-APL-2014-11554

PATIENT
  Age: 34 Year
  Sex: Female
  Weight: 62 kg

DRUGS (2)
  1. METOPROLOL 50MG [Suspect]
     Active Substance: METOPROLOL
     Indication: ATRIAL FIBRILLATION
     Dosage: 50 MG, TWO TIMES A DAY
     Route: 048
     Dates: start: 20121115, end: 20130810
  2. FOLIO [Concomitant]
     Active Substance: FOLIC ACID
     Indication: PROPHYLAXIS OF NEURAL TUBE DEFECT
     Route: 048

REACTIONS (4)
  - Uterine haematoma [Unknown]
  - Maternal exposure during pregnancy [Unknown]
  - Placental insufficiency [Unknown]
  - Caesarean section [None]
